FAERS Safety Report 9781030 (Version 2)
Quarter: 2014Q1

REPORT INFORMATION
  Report Type: Spontaneous
  Country: US (occurrence: None)
  Receive Date: 20131220
  Receipt Date: 20140129
  Transmission Date: 20141002
  Serious: Yes (Hospitalization)
  Sender: FDA-Public Use
  Company Number: AUR-APL-2013-10487

PATIENT
  Age: 77 Year
  Sex: Female
  Weight: 84 kg

DRUGS (9)
  1. LEVOFLOXACIN [Suspect]
     Indication: DIVERTICULITIS
     Dosage: 500 MG, PIGGYBACK DAILY, INTRAVENOUS
     Route: 042
  2. METRONIDAZOLE [Suspect]
     Indication: DIVERTICULITIS
     Dosage: 500 MG, PIGGYBACK EVERY 8 HOURS, INTRAVENOUS
     Route: 042
  3. ALLOPURINOL (ALLOPURINOL) [Concomitant]
  4. DILTIAZEM CD (DILTIAZEM HYDROCHLORIDE) [Concomitant]
  5. FAMOTIDINE (FAMOTIDINE) [Concomitant]
  6. FUROSEMIDE (FUROSEMIDE) [Concomitant]
  7. LEVOTHYROXINE (LEVOTHYROXINE) [Concomitant]
  8. PAROXETINE (PAROXETINE) [Concomitant]
  9. WARFARIN (WARFARIN) [Concomitant]

REACTIONS (3)
  - Dyskinesia [None]
  - Leukocytosis [None]
  - Renal impairment [None]
